FAERS Safety Report 4490871-5 (Version None)
Quarter: 2004Q4

REPORT INFORMATION
  Report Type: 
  Country: None (occurrence: None)
  Receive Date: 20041027
  Receipt Date: 20041015
  Transmission Date: 20050328
  Serious: Yes (Hospitalization)
  Sender: FDA-Public Use
  Company Number: 2004079434

PATIENT
  Age: 81 Year
  Sex: Female
  Weight: 42 kg

DRUGS (1)
  1. SULPERAZON (CEFOPERAZONE, SULBACTAM) [Suspect]
     Indication: INFECTION PROPHYLAXIS
     Dosage: 2 GRAM (1 GRAM, 2 IN 1 D), INTRAVENOUS
     Route: 042
     Dates: start: 20040816, end: 20040818

REACTIONS (2)
  - CLOSTRIDIUM COLITIS [None]
  - MEDICATION ERROR [None]
